FAERS Safety Report 8710855 (Version 3)
Quarter: 2012Q4

REPORT INFORMATION
  Report Type: 
  Country: CN (occurrence: CN)
  Receive Date: 20120807
  Receipt Date: 20121102
  Transmission Date: 20130627
  Serious: Yes (Death, Life-Threatening, Hospitalization, Other)
  Sender: FDA-Public Use
  Company Number: CN-ASTELLAS-2012US006699

PATIENT
  Age: 78 Year
  Sex: Male

DRUGS (3)
  1. TARCEVA [Suspect]
     Indication: RECTAL CANCER METASTATIC
     Dosage: 150 mg, UID/QD
     Route: 048
     Dates: start: 20120601, end: 20120609
  2. AVASTIN                            /01555201/ [Suspect]
     Indication: RECTAL CANCER METASTATIC
     Dosage: UNK
     Route: 065
  3. XELODA [Suspect]
     Indication: RECTAL CANCER METASTATIC
     Dosage: 1.5 DF, bid for 2 weeks followed by 7 day rest period
     Route: 048
     Dates: end: 20120223

REACTIONS (28)
  - Off label use [Unknown]
  - Depressed level of consciousness [Unknown]
  - Coma [Unknown]
  - Urinary incontinence [Unknown]
  - Aphasia [Unknown]
  - Emphysema [Unknown]
  - Productive cough [Not Recovered/Not Resolved]
  - Asthenia [Unknown]
  - Dyspnoea [Not Recovered/Not Resolved]
  - Metastases to bone [Unknown]
  - Bronchial carcinoma [Unknown]
  - Blood urea increased [Unknown]
  - Blood creatinine increased [Unknown]
  - Pneumonia [Unknown]
  - Cerebral infarction [Fatal]
  - Lung infection [Unknown]
  - Asthma [Unknown]
  - Rhinorrhoea [Unknown]
  - Oedema peripheral [Unknown]
  - Diarrhoea [Recovering/Resolving]
  - Nausea [Unknown]
  - Vomiting [Unknown]
  - Rash pruritic [Unknown]
  - Stomatitis [Unknown]
  - Decreased appetite [Unknown]
  - Epistaxis [Unknown]
  - Poor quality sleep [Unknown]
  - Rash [Unknown]
